FAERS Safety Report 4505903-5 (Version None)
Quarter: 2004Q4

REPORT INFORMATION
  Report Type: 
  Country: None (occurrence: None)
  Receive Date: 20041025
  Receipt Date: 20040420
  Transmission Date: 20050328
  Serious: Yes (Other)
  Sender: FDA-Public Use
  Company Number: US-JNJFOC-20040206445

PATIENT
  Age: 41 Year
  Sex: Male
  Weight: 78.1094 kg

DRUGS (6)
  1. REMICADE [Suspect]
     Indication: CROHN'S DISEASE
     Dosage: INTRAVENOUS
     Route: 042
     Dates: start: 20000101
  2. REMICADE [Suspect]
     Indication: CROHN'S DISEASE
     Dosage: INTRAVENOUS
     Route: 042
     Dates: start: 20040204
  3. ASACOL [Concomitant]
  4. TYLENOL [Concomitant]
  5. VICODIN [Concomitant]
  6. DILAUDID [Concomitant]

REACTIONS (4)
  - DEPRESSION [None]
  - EJECTION FRACTION DECREASED [None]
  - INFUSION SITE SWELLING [None]
  - SERUM SICKNESS [None]
